FAERS Safety Report 10973267 (Version 1)
Quarter: 2015Q2

REPORT INFORMATION
  Report Type: Report from Study
  Country: NL (occurrence: NL)
  Receive Date: 20150401
  Receipt Date: 20150401
  Transmission Date: 20150821
  Serious: Yes (Death, Life-Threatening, Hospitalization)
  Sender: FDA-Public Use
  Company Number: NL-TAKEDA-2014JNJ006537

PATIENT
  Age: 86 Year
  Sex: Female

DRUGS (3)
  1. VELCADE [Suspect]
     Active Substance: BORTEZOMIB
     Indication: PLASMA CELL MYELOMA
     Dosage: 3.5 MG, UNK
     Route: 065
     Dates: start: 20141124
  2. PREDNISONE. [Suspect]
     Active Substance: PREDNISONE
     Indication: PLASMA CELL MYELOMA
     Dosage: 60 MG, UNK
     Route: 048
     Dates: start: 20141124
  3. MELPHALAN [Suspect]
     Active Substance: MELPHALAN
     Indication: PLASMA CELL MYELOMA
     Dosage: 12 MG, UNK
     Route: 048
     Dates: start: 20141124

REACTIONS (5)
  - Lung infection [None]
  - Delirium [None]
  - Malaise [Fatal]
  - Right ventricular dysfunction [Recovered/Resolved]
  - Parainfluenzae virus infection [None]

NARRATIVE: CASE EVENT DATE: 20141209
